FAERS Safety Report 25942206 (Version 1)
Quarter: 2025Q4

REPORT INFORMATION
  Report Type: Spontaneous
  Country: US (occurrence: None)
  Receive Date: 20251020
  Receipt Date: 20251020
  Transmission Date: 20260117
  Serious: Yes (Life-Threatening, Other)
  Sender: ORGANON
  Company Number: US-MLMSERVICE-20251002-PI665716-00298-2

PATIENT
  Age: 68 Year
  Sex: Male

DRUGS (6)
  1. SIMVASTATIN [Interacting]
     Active Substance: SIMVASTATIN
     Indication: Lipid management
     Dosage: DOSE HAD RECENTLY BEEN INCREASED FROM 20 TO 40MG
  2. SIMVASTATIN [Interacting]
     Active Substance: SIMVASTATIN
     Dosage: DOSE HAD RECENTLY BEEN INCREASED FROM 20 TO 40MG
  3. SIMVASTATIN [Interacting]
     Active Substance: SIMVASTATIN
     Dosage: HE HAD GOTTEN CONFUSED AND HAD BEEN TAKING BOTH HIS PREVIOUS SIMVASTATIN PRESCRIPTION (20MG) AND HIS NEWLY PRESCRIBED DOSE (40MG) SIMULTANEOUSLY, RESULTING IN A TOTAL DAILY DOSE OF 60MG FOR OVER A MONTH
  4. SIMVASTATIN [Interacting]
     Active Substance: SIMVASTATIN
     Dosage: LOWERED BACK TO 20MG DAILY
  5. LISINOPRIL [Interacting]
     Active Substance: LISINOPRIL
     Dosage: PRIOR 28 MONTHS
  6. LOSARTAN [Concomitant]
     Active Substance: LOSARTAN
     Dosage: 25 MILLIGRAM

REACTIONS (4)
  - Angioedema [Recovered/Resolved]
  - Drug interaction [Recovered/Resolved]
  - Accidental overdose [Unknown]
  - Wrong dose [Unknown]
